FAERS Safety Report 12789694 (Version 3)
Quarter: 2017Q2

REPORT INFORMATION
  Report Type: Report from Study
  Country: GB (occurrence: GB)
  Receive Date: 20160928
  Receipt Date: 20170414
  Transmission Date: 20170830
  Serious: Yes (Death, Hospitalization)
  Sender: FDA-Public Use
  Company Number: GB-B.I. PHARMACEUTICALS,INC./RIDGEFIELD-2016-BI-03767BI

PATIENT
  Age: 83 Year
  Sex: Male
  Weight: 102 kg

DRUGS (2)
  1. DABIGATRAN [Suspect]
     Active Substance: DABIGATRAN
     Route: 048
  2. DABIGATRAN [Suspect]
     Active Substance: DABIGATRAN
     Indication: ATRIAL FIBRILLATION
     Route: 048
     Dates: start: 20150729

REACTIONS (3)
  - Rectal haemorrhage [Recovered/Resolved]
  - Gastric ulcer [Recovered/Resolved]
  - Acute abdomen [Fatal]

NARRATIVE: CASE EVENT DATE: 20160104
